FAERS Safety Report 25679861 (Version 1)
Quarter: 2025Q3

REPORT INFORMATION
  Report Type: Spontaneous
  Country: US (occurrence: US)
  Receive Date: 20250814
  Receipt Date: 20250814
  Transmission Date: 20251021
  Serious: Yes (Hospitalization)
  Sender: AUROBINDO
  Company Number: US-AUROBINDO-AUR-APL-2025-011424

PATIENT
  Age: 74 Year
  Sex: Female
  Weight: 74.1 kg

DRUGS (5)
  1. BELINOSTAT [Suspect]
     Active Substance: BELINOSTAT
     Indication: Uveal melanoma
     Route: 042
     Dates: start: 20230130, end: 20230519
  2. BINIMETINIB [Suspect]
     Active Substance: BINIMETINIB
     Indication: Uveal melanoma
     Dosage: 45 MILLIGRAM, TWO TIMES A DAY
     Route: 048
     Dates: start: 20230130, end: 20230531
  3. PREDNISONE [Concomitant]
     Active Substance: PREDNISONE
     Indication: Pneumonitis
     Route: 048
     Dates: start: 20230605
  4. LASIX [Concomitant]
     Active Substance: FUROSEMIDE
     Indication: Oedema
     Route: 048
  5. BACTRIM [Concomitant]
     Active Substance: SULFAMETHOXAZOLE\TRIMETHOPRIM
     Indication: Oedema
     Route: 048

REACTIONS (1)
  - Dyspnoea [Recovered/Resolved]

NARRATIVE: CASE EVENT DATE: 20230613
